FAERS Safety Report 7024336-3 (Version None)
Quarter: 2010Q4

REPORT INFORMATION
  Report Type: 
  Country: None (occurrence: None)
  Receive Date: 20101001
  Receipt Date: 20100920
  Transmission Date: 20110411
  Serious: Yes (Other)
  Sender: FDA-Public Use
  Company Number: DE-SANOFI-AVENTIS-2010SA056445

PATIENT
  Age: 49 Year
  Sex: Female

DRUGS (5)
  1. OXALIPLATIN [Suspect]
     Route: 042
  2. OXALIPLATIN [Suspect]
     Route: 042
     Dates: start: 20100823, end: 20100823
  3. CAPECITABINE [Suspect]
     Route: 048
     Dates: end: 20100906
  4. PANTOPRAZOLE [Concomitant]
  5. SODIUM SELENITE [Concomitant]

REACTIONS (2)
  - ABDOMINAL PAIN LOWER [None]
  - HYPERLIPASAEMIA [None]
